FAERS Safety Report 4960023-0 (Version None)
Quarter: 2006Q1

REPORT INFORMATION
  Report Type: 
  Country: None (occurrence: None)
  Receive Date: 20060327
  Receipt Date: 20060310
  Transmission Date: 20060701
  Serious: Yes (Death)
  Sender: FDA-Public Use
  Company Number: COT_0456_2006

PATIENT
  Age: 72 Year
  Sex: Male
  Weight: 103.4201 kg

DRUGS (19)
  1. VENTAVIS [Suspect]
     Indication: PULMONARY HYPERTENSION
     Dosage: 5 MCG 6XD IH
     Route: 055
     Dates: start: 20060207, end: 20060228
  2. VENTAVIS [Suspect]
     Indication: PULMONARY HYPERTENSION
     Dosage: 2.5 MCG 6XD IH
     Route: 055
     Dates: end: 20060306
  3. COUMADIN [Concomitant]
  4. TRACLEER [Concomitant]
  5. LIPITOR [Concomitant]
  6. LASIX [Concomitant]
  7. VITAMIN E [Concomitant]
  8. HYDROCHLOROTHIAZIDE [Concomitant]
  9. GLUCOPHAGE [Concomitant]
  10. TOPROL-XL [Concomitant]
  11. DIGOXIN [Concomitant]
  12. PLAVIX [Concomitant]
  13. PAMELOR [Concomitant]
  14. LANTUS [Concomitant]
  15. ZESTRIL [Concomitant]
  16. K-DUR 10 [Concomitant]
  17. DETROL [Concomitant]
  18. ASPIRIN [Concomitant]
  19. DITROPAN [Concomitant]

REACTIONS (4)
  - DIZZINESS [None]
  - HAEMOPTYSIS [None]
  - SUDDEN DEATH [None]
  - THROAT IRRITATION [None]
